FAERS Safety Report 10952252 (Version 1)
Quarter: 2015Q1

REPORT INFORMATION
  Report Type: Spontaneous
  Country: US (occurrence: None)
  Receive Date: 20150324
  Receipt Date: 20150324
  Transmission Date: 20150721
  Serious: No
  Sender: FDA-Public Use
  Company Number: None

PATIENT
  Age: 58 Year
  Sex: Female
  Weight: 70.31 kg

DRUGS (1)
  1. PROVENTIL HFA [Suspect]
     Active Substance: ALBUTEROL SULFATE
     Indication: ASTHMA
     Dosage: 2 PUFFS BY MOUTH 4X D  FOUR TIMES DAILY
     Route: 048
     Dates: start: 20150206, end: 20150211

REACTIONS (2)
  - Product formulation issue [None]
  - Hepatic pain [None]

NARRATIVE: CASE EVENT DATE: 20150206
